FAERS Safety Report 5358173-2 (Version None)
Quarter: 2007Q2

REPORT INFORMATION
  Report Type: 
  Country: None (occurrence: None)
  Receive Date: 20070530
  Receipt Date: 20061122
  Transmission Date: 20071010
  Serious: Yes (Hospitalization, Other)
  Sender: FDA-Public Use
  Company Number: US200605003626

PATIENT
  Age: 41 Year
  Sex: Male
  Weight: 108.8 kg

DRUGS (5)
  1. ZYPREXA [Suspect]
     Dosage: 2.5 MG
     Dates: start: 19950601, end: 19981201
  2. RISPERIDONE [Concomitant]
  3. DEPAKOTE [Concomitant]
  4. WELLBUTRIN [Concomitant]
  5. PAXIL [Concomitant]

REACTIONS (7)
  - DIABETES MELLITUS [None]
  - DIABETIC COMA [None]
  - DIABETIC KETOACIDOSIS [None]
  - HYPERLIPIDAEMIA [None]
  - METABOLIC DISORDER [None]
  - METABOLIC SYNDROME [None]
  - PANCREATITIS [None]
